FAERS Safety Report 13608916 (Version 2)
Quarter: 2017Q3

REPORT INFORMATION
  Report Type: Report from Study
  Country: GB (occurrence: GB)
  Receive Date: 20170602
  Receipt Date: 20170726
  Transmission Date: 20171127
  Serious: Yes (Life-Threatening, Hospitalization, Other)
  Sender: FDA-Public Use
  Company Number: GB-AMGEN-GBRSL2017083383

PATIENT
  Age: 66 Year
  Sex: Female

DRUGS (1)
  1. ARANESP [Suspect]
     Active Substance: DARBEPOETIN ALFA
     Indication: PRODUCT USED FOR UNKNOWN INDICATION
     Dosage: 60 MUG, UNK
     Route: 065

REACTIONS (8)
  - Aspiration pleural cavity [Unknown]
  - Internal haemorrhage [Unknown]
  - Cardiac arrest [Unknown]
  - Chest pain [Unknown]
  - Hypokinesia [Unknown]
  - Dyspnoea [Unknown]
  - Renal impairment [Unknown]
  - Blood glucose increased [Unknown]

NARRATIVE: CASE EVENT DATE: 201707
